FAERS Safety Report 24545442 (Version 1)
Quarter: 2024Q4

REPORT INFORMATION
  Report Type: Spontaneous
  Country: US (occurrence: None)
  Receive Date: 20241023
  Receipt Date: 20241023
  Transmission Date: 20250115
  Serious: No
  Sender: Public
  Company Number: None

PATIENT
  Age: 26 Year
  Sex: Female
  Weight: 69.75 kg

DRUGS (4)
  1. BUPROPION [Suspect]
     Active Substance: BUPROPION
  2. BUPROPION [Suspect]
     Active Substance: BUPROPION
  3. Junel birth control [Concomitant]
  4. TOPAMAX [Concomitant]
     Active Substance: TOPIRAMATE

REACTIONS (1)
  - Anxiety [None]
